FAERS Safety Report 4311022-3 (Version None)
Quarter: 2004Q1

REPORT INFORMATION
  Report Type: 
  Country: None (occurrence: None)
  Receive Date: 20040302
  Receipt Date: 20040302
  Transmission Date: 20041129
  Serious: Yes (Life-Threatening, Hospitalization)
  Sender: FDA-Public Use
  Company Number: None

PATIENT
  Age: 55 Year
  Sex: Male
  Weight: 60.782 kg

DRUGS (1)
  1. TRIMETHOPRIM [Suspect]
     Indication: URINARY TRACT INFECTION
     Dosage: 200 MG Q 12 H ORAL
     Route: 048
     Dates: start: 20031229, end: 20040111

REACTIONS (4)
  - BLISTER [None]
  - GASTROINTESTINAL HAEMORRHAGE [None]
  - RASH [None]
  - THROMBOCYTOPENIA [None]
